FAERS Safety Report 11291144 (Version 2)
Quarter: 2016Q1

REPORT INFORMATION
  Report Type: Spontaneous
  Country: US (occurrence: US)
  Receive Date: 20150722
  Receipt Date: 20160125
  Transmission Date: 20160525
  Serious: No
  Sender: FDA-Public Use
  Company Number: US-UNITED THERAPEUTICS-UNT-2015-005799

PATIENT
  Sex: Female
  Weight: 102.95 kg

DRUGS (6)
  1. REVATIO [Concomitant]
     Active Substance: SILDENAFIL CITRATE
     Indication: PRODUCT USED FOR UNKNOWN INDICATION
  2. REMODULIN [Suspect]
     Active Substance: TREPROSTINIL
     Dosage: 0.035 ?G/KG/MIN, CONTINUING
     Route: 041
  3. COUMADIN [Concomitant]
     Active Substance: WARFARIN SODIUM
     Indication: PRODUCT USED FOR UNKNOWN INDICATION
  4. REMODULIN [Suspect]
     Active Substance: TREPROSTINIL
     Dosage: 0.037 ?G/KG/MIN, CONTINUING
     Route: 041
  5. REMODULIN [Suspect]
     Active Substance: TREPROSTINIL
     Indication: PULMONARY HYPERTENSION
     Dosage: 0.024 ?G/KG/MIN, CONTINUING
     Route: 041
     Dates: start: 20150504
  6. REMODULIN [Suspect]
     Active Substance: TREPROSTINIL
     Dosage: 0.020 ?G/KG/MIN, CONTINUING
     Route: 041
     Dates: start: 20150505

REACTIONS (15)
  - Erythema [Unknown]
  - Pain [Unknown]
  - Flushing [Unknown]
  - Drug dose omission [Unknown]
  - Accidental overdose [Unknown]
  - Dyspnoea [Unknown]
  - Presyncope [Unknown]
  - Device issue [Unknown]
  - Exercise tolerance decreased [Unknown]
  - Headache [Unknown]
  - Fatigue [Unknown]
  - Nausea [Unknown]
  - Dizziness [Unknown]
  - Thrombosis in device [Unknown]
  - Anxiety [Unknown]

NARRATIVE: CASE EVENT DATE: 2015
